FAERS Safety Report 17002569 (Version 3)
Quarter: 2020Q1

REPORT INFORMATION
  Report Type: Report from Study
  Country: US (occurrence: US)
  Receive Date: 20191107
  Receipt Date: 20200109
  Transmission Date: 20200409
  Serious: Yes (Hospitalization, Other)
  Sender: FDA-Public Use
  Company Number: US-ROCHE-2460629

PATIENT
  Sex: Male

DRUGS (3)
  1. ERIVEDGE [Suspect]
     Active Substance: VISMODEGIB
     Indication: NEOPLASM SKIN
     Dosage: TAKE 1 CAPSULE BY MOUTH DAILY
     Route: 048
  2. CAFFEINE. [Concomitant]
     Active Substance: CAFFEINE
  3. ERIVEDGE [Suspect]
     Active Substance: VISMODEGIB
     Indication: BASAL CELL CARCINOMA

REACTIONS (4)
  - Thrombosis [Unknown]
  - Off label use [Unknown]
  - Pulmonary embolism [Unknown]
  - Intentional product use issue [Unknown]
